FAERS Safety Report 13835526 (Version 1)
Quarter: 2017Q3

REPORT INFORMATION
  Report Type: Spontaneous
  Country: US (occurrence: US)
  Receive Date: 20170804
  Receipt Date: 20170804
  Transmission Date: 20171127
  Serious: Yes (Other)
  Sender: FDA-Public Use
  Company Number: US-TEVA-794109USA

PATIENT
  Age: 46 Year
  Sex: Female

DRUGS (2)
  1. DAUNORUBICIN [Suspect]
     Active Substance: DAUNORUBICIN
     Indication: MYELODYSPLASTIC SYNDROME
     Route: 065
  2. DAUNORUBICIN [Suspect]
     Active Substance: DAUNORUBICIN
     Indication: LEUKAEMIA
     Route: 065

REACTIONS (7)
  - Laryngeal necrosis [Recovered/Resolved]
  - Aspergillus infection [Recovered/Resolved]
  - Tracheal disorder [Recovered/Resolved]
  - Fistula [Recovered/Resolved]
  - Pharyngitis [Recovered/Resolved]
  - Respiratory failure [Recovered/Resolved]
  - Laryngeal disorder [Recovered/Resolved]
